FAERS Safety Report 14124810 (Version 1)
Quarter: 2017Q4

REPORT INFORMATION
  Report Type: Spontaneous
  Country: US (occurrence: US)
  Receive Date: 20171025
  Receipt Date: 20171025
  Transmission Date: 20180321
  Serious: No
  Sender: FDA-Public Use
  Company Number: US-PERRIGO-17US023841

PATIENT
  Age: 30 Year
  Sex: Female
  Weight: 54.42 kg

DRUGS (1)
  1. NICOTINE POLACRILEX [Suspect]
     Active Substance: NICOTINE
     Indication: SMOKING CESSATION THERAPY
     Dosage: 4 MG, 3 TO 12 TIMES DAILY
     Route: 002
     Dates: start: 20170511, end: 20170518

REACTIONS (2)
  - Gingival bleeding [Recovered/Resolved]
  - Gingival discomfort [Recovered/Resolved]

NARRATIVE: CASE EVENT DATE: 20170511
